FAERS Safety Report 11464240 (Version 1)
Quarter: 2015Q3

REPORT INFORMATION
  Report Type: Spontaneous
  Country: US (occurrence: US)
  Receive Date: 20150831
  Receipt Date: 20150831
  Transmission Date: 20151125
  Serious: No
  Sender: FDA-Public Use
  Company Number: US-ELI_LILLY_AND_COMPANY-US201107006018

PATIENT
  Age: 85 Year
  Sex: Female

DRUGS (5)
  1. PLAVIX [Concomitant]
     Active Substance: CLOPIDOGREL BISULFATE
     Dosage: 75 MG, QOD
  2. COREG [Concomitant]
     Active Substance: CARVEDILOL
     Dosage: 3.25 MG, EACH MORNING
  3. CYMBALTA [Suspect]
     Active Substance: DULOXETINE HYDROCHLORIDE
     Indication: ARTHRITIS
     Dosage: 30 MG, QD
     Dates: start: 20110719
  4. BABY ASPIRIN [Concomitant]
     Active Substance: ASPIRIN
     Dosage: UNK UNK, EACH MORNING
  5. COREG [Concomitant]
     Active Substance: CARVEDILOL
     Dosage: 3.25 MG, EACH EVENING

REACTIONS (2)
  - Presyncope [Unknown]
  - Pain [Unknown]

NARRATIVE: CASE EVENT DATE: 20110719
